FAERS Safety Report 8807871 (Version 1)
Quarter: 2012Q4

REPORT INFORMATION
  Report Type: 
  Country: IT (occurrence: IT)
  Receive Date: 20120925
  Receipt Date: 20120925
  Transmission Date: 20130627
  Serious: Yes (Hospitalization)
  Sender: FDA-Public Use
  Company Number: IT-GLAXOSMITHKLINE-B0832929A

PATIENT
  Age: 67 Year
  Sex: Male

DRUGS (4)
  1. REQUIP [Suspect]
     Indication: PARKINSON^S DISEASE
     Dosage: 8MG per day
     Route: 048
     Dates: start: 20100101, end: 20120703
  2. SIRIO [Suspect]
     Indication: PARKINSON^S DISEASE
     Dosage: 1.5U per day
     Route: 048
     Dates: start: 20100101, end: 20120703
  3. NEUPRO [Suspect]
     Indication: PARKINSON^S DISEASE
     Route: 062
     Dates: start: 20100101, end: 20120704
  4. CARDIRENE [Suspect]
     Indication: PRODUCT USED FOR UNKNOWN INDICATION
     Route: 065
     Dates: end: 20120704

REACTIONS (2)
  - Skin lesion [Recovering/Resolving]
  - Purpura [Unknown]
